FAERS Safety Report 25535748 (Version 3)
Quarter: 2025Q3

REPORT INFORMATION
  Report Type: Report from Study
  Country: US (occurrence: US)
  Receive Date: 20250709
  Receipt Date: 20250905
  Transmission Date: 20251021
  Serious: Yes (Hospitalization)
  Sender: PFIZER
  Company Number: US-PFIZER INC-202500114323

PATIENT
  Age: 71 Year
  Sex: Female

DRUGS (3)
  1. LORBRENA [Suspect]
     Active Substance: LORLATINIB
     Dosage: TAKE 3 TABLETS BY MOUTH ONCE A DAY
     Route: 048
  2. LORBRENA [Suspect]
     Active Substance: LORLATINIB
     Dosage: TAKE 3 TABLETS BY MOUTH ONCE A DAY
     Route: 048
  3. LORBRENA [Suspect]
     Active Substance: LORLATINIB
     Dosage: TAKE 3 TABLETS BY MOUTH ONCE A DAY
     Route: 048
     Dates: end: 202508

REACTIONS (10)
  - Peripheral swelling [Unknown]
  - Fluid retention [Unknown]
  - Fatigue [Unknown]
  - Somnolence [Unknown]
  - Dizziness [Unknown]
  - Hypertension [Unknown]
  - Rash [Unknown]
  - Arthralgia [Unknown]
  - Arthritis [Unknown]
  - Osteoporosis [Unknown]
